FAERS Safety Report 7818382-7 (Version None)
Quarter: 2011Q4

REPORT INFORMATION
  Report Type: 
  Country: None (occurrence: None)
  Receive Date: 20111017
  Receipt Date: 20111007
  Transmission Date: 20120403
  Serious: Yes (Other)
  Sender: FDA-Public Use
  Company Number: US-CELGENEUS-163-21880-11080734

PATIENT
  Sex: Female

DRUGS (13)
  1. REVLIMID [Suspect]
     Indication: MULTIPLE MYELOMA
     Dosage: 15 MILLIGRAM
     Route: 048
     Dates: start: 20110715, end: 20110804
  2. PRAVASTATIN SODIUM [Concomitant]
     Dosage: 40 MILLIGRAM
     Route: 048
     Dates: start: 20080725
  3. SAM-E [Concomitant]
     Dosage: 400 MILLIGRAM
     Route: 048
  4. TYLENOL (CAPLET) [Concomitant]
     Dosage: 650 MILLIGRAM
     Route: 048
  5. POTASSIUM CHLORIDE [Concomitant]
     Dosage: 2 CAPSULE
     Route: 048
     Dates: start: 20101027
  6. BENAZEPRIL HYDROCHLORIDE [Concomitant]
     Dosage: 40 MILLIGRAM
     Route: 048
  7. BISOPROLOL FUMARATE [Concomitant]
     Dosage: 5 MILLIGRAM
     Route: 048
     Dates: start: 20080725
  8. CHLORTHALIDONE [Concomitant]
     Dosage: 25 MILLIGRAM
     Route: 048
     Dates: start: 20101126
  9. METFORMIN HCL [Concomitant]
     Dosage: 500 MILLIGRAM
     Route: 048
     Dates: start: 20081110
  10. DEXAMETHASONE [Concomitant]
     Dosage: 4 MG ALONG WITH 6 MG (TOTAL 10MG)
     Route: 048
     Dates: start: 20110722
  11. DEXAMETHASONE [Concomitant]
     Dosage: 6MG ALONG WITH 4 MG (TOTAL 10MG)
     Route: 048
     Dates: start: 20110725
  12. ALEVE [Concomitant]
     Dosage: 1 TABLET
     Route: 048
  13. VITAMIN D [Concomitant]
     Dosage: 2000 UNIT
     Route: 048

REACTIONS (4)
  - OSTEOLYSIS [None]
  - FATIGUE [None]
  - OEDEMA PERIPHERAL [None]
  - DIARRHOEA [None]
